FAERS Safety Report 7509828-2 (Version None)
Quarter: 2011Q2

REPORT INFORMATION
  Report Type: 
  Country: None (occurrence: None)
  Receive Date: 20110527
  Receipt Date: 20110519
  Transmission Date: 20111010
  Serious: Yes (Hospitalization)
  Sender: FDA-Public Use
  Company Number: A0929015A

PATIENT
  Age: 59 Year
  Sex: Male
  Weight: 164.7 kg

DRUGS (2)
  1. STUDY MEDICATION [Suspect]
     Indication: OSTEOARTHRITIS
     Dates: start: 20100413
  2. DIGOXIN [Suspect]
     Indication: CARDIAC FAILURE
     Dosage: 125UG PER DAY
     Route: 048
     Dates: end: 20110412

REACTIONS (1)
  - CARDIAC FAILURE [None]
